FAERS Safety Report 5256277-6 (Version None)
Quarter: 2007Q1

REPORT INFORMATION
  Report Type: 
  Country: None (occurrence: None)
  Receive Date: 20070302
  Receipt Date: 20070302
  Transmission Date: 20070707
  Serious: Yes (Other)
  Sender: FDA-Public Use
  Company Number: None

PATIENT
  Age: 47 Year
  Sex: Female
  Weight: 80.7403 kg

DRUGS (1)
  1. ESTRADIOL [Suspect]
     Indication: MENOPAUSE
     Dosage: 1 TABLET DAILY PO
     Route: 048
     Dates: start: 20070112, end: 20070301

REACTIONS (2)
  - DRUG INEFFECTIVE [None]
  - PHARMACEUTICAL PRODUCT COMPLAINT [None]
